FAERS Safety Report 17593422 (Version 1)
Quarter: 2020Q1

REPORT INFORMATION
  Report Type: Report from Study
  Country: US (occurrence: US)
  Receive Date: 20200327
  Receipt Date: 20200327
  Transmission Date: 20200409
  Serious: Yes (Life-Threatening)
  Sender: FDA-Public Use
  Company Number: US-JNJFOC-NSADSS2001031374

PATIENT
  Age: 74 Year
  Sex: Female
  Weight: 60.84 kg

DRUGS (5)
  1. MIACALCIN [Concomitant]
     Active Substance: CALCITONIN SALMON
     Indication: OSTEOPOROSIS
     Route: 045
     Dates: start: 20010216
  2. CISAPRIDE [Suspect]
     Active Substance: CISAPRIDE
     Indication: GASTROOESOPHAGEAL REFLUX DISEASE
     Route: 048
     Dates: start: 20001229, end: 20011009
  3. MIACALCIN [Concomitant]
     Active Substance: CALCITONIN SALMON
     Indication: PROPHYLAXIS
  4. ATIVAN [Concomitant]
     Active Substance: LORAZEPAM
     Indication: TREMOR
     Route: 065
     Dates: start: 20010228
  5. CISAPRIDE [Suspect]
     Active Substance: CISAPRIDE
     Indication: GASTROOESOPHAGEAL REFLUX DISEASE
     Route: 065
     Dates: end: 20001227

REACTIONS (1)
  - Electrocardiogram QT prolonged [Not Recovered/Not Resolved]

NARRATIVE: CASE EVENT DATE: 20011002
